FAERS Safety Report 5167723-0 (Version None)
Quarter: 2006Q4

REPORT INFORMATION
  Report Type: 
  Country: None (occurrence: None)
  Receive Date: 20061204
  Receipt Date: 20061204
  Transmission Date: 20070319
  Serious: Yes (Hospitalization)
  Sender: FDA-Public Use
  Company Number: None

PATIENT
  Sex: Male
  Weight: 64.2 kg

DRUGS (2)
  1. CAMPTOSAR [Suspect]
     Dosage: 265.5 MG
  2. ELOXATIN [Suspect]
     Dosage: 150.45 MG

REACTIONS (2)
  - DEHYDRATION [None]
  - DIARRHOEA [None]
